FAERS Safety Report 10050604 (Version 1)
Quarter: 2014Q2

REPORT INFORMATION
  Report Type: Spontaneous
  Country: US (occurrence: US)
  Receive Date: 20140401
  Receipt Date: 20140401
  Transmission Date: 20141212
  Serious: No
  Sender: FDA-Public Use
  Company Number: US-ASTRAZENECA-2013SE55933

PATIENT
  Age: 59 Year
  Sex: Male

DRUGS (2)
  1. NEXIUM [Suspect]
     Route: 048
  2. IBUPROFEN [Concomitant]
     Indication: PAIN
     Dosage: DAILY

REACTIONS (5)
  - Pain in jaw [Unknown]
  - Toothache [Unknown]
  - Ear pain [Unknown]
  - Laryngeal pain [Unknown]
  - Intentional product misuse [Unknown]
